FAERS Safety Report 24400210 (Version 1)
Quarter: 2024Q4

REPORT INFORMATION
  Report Type: Spontaneous
  Country: US (occurrence: US)
  Receive Date: 20241005
  Receipt Date: 20241005
  Transmission Date: 20250114
  Serious: No
  Sender: GLAXOSMITHKLINE
  Company Number: US-GSK-US2024119272

PATIENT
  Age: 9 Decade
  Sex: Female

DRUGS (3)
  1. OJJAARA [Suspect]
     Active Substance: MOMELOTINIB DIHYDROCHLORIDE MONOHYDRATE
     Indication: Myelofibrosis
     Dosage: 200 MG
  2. OJJAARA [Suspect]
     Active Substance: MOMELOTINIB DIHYDROCHLORIDE MONOHYDRATE
     Dosage: 150 UNK
  3. OJJAARA [Suspect]
     Active Substance: MOMELOTINIB DIHYDROCHLORIDE MONOHYDRATE
     Dosage: 100 UNK

REACTIONS (2)
  - Gastrointestinal disorder [Recovered/Resolved]
  - Feeling abnormal [Recovered/Resolved]
